FAERS Safety Report 7408179-4 (Version None)
Quarter: 2011Q1

REPORT INFORMATION
  Report Type: 
  Country: None (occurrence: None)
  Receive Date: 20110301
  Receipt Date: 20100520
  Transmission Date: 20110831
  Serious: Yes (Disabling, Other)
  Sender: FDA-Public Use
  Company Number: ALA_00884_2010

PATIENT
  Sex: Female
  Weight: 80.7403 kg

DRUGS (3)
  1. METOCLOPRAMIDE [Suspect]
     Indication: NAUSEA
     Dosage: (DF ORAL), (DF), (DF)
     Route: 048
     Dates: start: 20021201
  2. METOCLOPRAMIDE [Suspect]
     Indication: NAUSEA
     Dosage: (DF ORAL), (DF), (DF)
     Route: 048
     Dates: start: 20011201
  3. METOCLOPRAMIDE [Suspect]
     Indication: NAUSEA
     Dosage: (DF ORAL), (DF), (DF)
     Route: 048
     Dates: start: 20051201

REACTIONS (5)
  - EXTRAPYRAMIDAL DISORDER [None]
  - MUSCLE TWITCHING [None]
  - DYSKINESIA [None]
  - TONGUE DISORDER [None]
  - DYSARTHRIA [None]
